FAERS Safety Report 5060142-7 (Version None)
Quarter: 2006Q3

REPORT INFORMATION
  Report Type: 
  Country: None (occurrence: None)
  Receive Date: 20060719
  Receipt Date: 20060710
  Transmission Date: 20061208
  Serious: Yes (Life-Threatening, Other)
  Sender: FDA-Public Use
  Company Number: GBWYE084410JUL06

PATIENT
  Age: 41 Year
  Sex: Male

DRUGS (4)
  1. GEMTUZUMAB OZOGAMICIN (GEMTUZUMAB OGOZAMICIN, INJECTION) [Suspect]
  2. FLUDARABINE (FLUDARABINE, , 0) [Suspect]
  3. CYTARABINE [Concomitant]
  4. NEUPOGEN [Concomitant]

REACTIONS (1)
  - ADVERSE EVENT [None]
